FAERS Safety Report 7531391-0 (Version None)
Quarter: 2011Q2

REPORT INFORMATION
  Report Type: 
  Country: None (occurrence: None)
  Receive Date: 20110608
  Receipt Date: 20110525
  Transmission Date: 20111010
  Serious: Yes (Hospitalization, Other)
  Sender: FDA-Public Use
  Company Number: PHHY2011DE35440

PATIENT
  Sex: Male
  Weight: 76.4 kg

DRUGS (2)
  1. ZOMETA [Suspect]
     Indication: PROSTATE CANCER
     Dosage: 4 MG/5ML EVERY 4 WEEKS
     Route: 042
     Dates: start: 20091111, end: 20110413
  2. CALCIUM CARBONATE [Concomitant]
     Indication: METASTASES TO BONE
     Dosage: 1 DF, QD
     Route: 048
     Dates: start: 20091111

REACTIONS (8)
  - ARTERIOSCLEROSIS [None]
  - OSTEOARTHRITIS [None]
  - GROIN PAIN [None]
  - MOBILITY DECREASED [None]
  - JOINT EFFUSION [None]
  - ARTHRALGIA [None]
  - OSTEONECROSIS [None]
  - JOINT SWELLING [None]
